FAERS Safety Report 12847487 (Version 1)
Quarter: 2016Q4

REPORT INFORMATION
  Report Type: Spontaneous
  Country: FR (occurrence: FR)
  Receive Date: 20161014
  Receipt Date: 20161014
  Transmission Date: 20170207
  Serious: Yes (Life-Threatening)
  Sender: FDA-Public Use
  Company Number: FR-PFIZER INC-2016472852

PATIENT
  Age: 50 Year
  Sex: Female

DRUGS (17)
  1. CEFTAZIDIME PANPHARMA [Suspect]
     Active Substance: CEFTAZIDIME
     Indication: ANTIBIOTIC THERAPY
  2. CEFTAZIDIME PANPHARMA [Suspect]
     Active Substance: CEFTAZIDIME
     Indication: COUGH
     Dosage: 2 G, 3X/DAY
     Route: 042
     Dates: start: 20160831, end: 20160916
  3. NOXAFIL [Suspect]
     Active Substance: POSACONAZOLE
     Dosage: 300 MG, 2X/DAY
     Route: 048
     Dates: start: 20160906, end: 20160919
  4. OROZAMUDOL [Concomitant]
     Active Substance: TRAMADOL
  5. LYRICA [Suspect]
     Active Substance: PREGABALIN
     Dosage: 25 MG, 1X/DAY
     Route: 048
     Dates: start: 20160907, end: 20160918
  6. CERUBIDINE [Suspect]
     Active Substance: DAUNORUBICIN HYDROCHLORIDE
     Indication: ACUTE MYELOID LEUKAEMIA
     Dosage: UNK
     Route: 042
     Dates: start: 20160906, end: 20160908
  7. IMOVANE [Concomitant]
     Active Substance: ZOPICLONE
  8. EMEND [Suspect]
     Active Substance: APREPITANT
     Dosage: 80 MG, 1X/DAY
     Route: 048
     Dates: start: 20160906, end: 20160909
  9. ROVAMYCINE /00074401/ [Suspect]
     Active Substance: SPIRAMYCIN
     Indication: COUGH
     Dosage: 3X10^6 IU ONCE DAILY , 1X/DAY
     Route: 042
     Dates: start: 20160831, end: 20160916
  10. CHIBRO-CADRON [Suspect]
     Active Substance: DEXAMETHASONE\NEOMYCIN SULFATE
     Dosage: 2 GTT, 1X/DAY
     Route: 047
     Dates: start: 20160907, end: 20160917
  11. IMIPENEM [Concomitant]
     Active Substance: IMIPENEM
  12. PHOSPHONEUROS [Concomitant]
     Active Substance: CALCIUM PHOSPHATE, DIBASIC, ANHYDROUS\MAGNESIUM GLYCEROPHOSPHATE\PHOSPHORIC ACID\SODIUM PHOSPHATE, DIBASIC
  13. AMIKACINE /00391001/ [Suspect]
     Active Substance: AMIKACIN
     Dosage: 1 G, 1X/DAY
     Route: 042
     Dates: start: 20160906, end: 20160909
  14. ZELITREX [Concomitant]
     Active Substance: VALACYCLOVIR HYDROCHLORIDE
  15. ARACYTINE [Suspect]
     Active Substance: CYTARABINE
     Indication: ACUTE MYELOID LEUKAEMIA
     Dosage: UNK
     Route: 042
     Dates: start: 20160906, end: 20160912
  16. ROVAMYCINE /00074401/ [Suspect]
     Active Substance: SPIRAMYCIN
     Indication: ANTIBIOTIC THERAPY
  17. PIPERACILLIN SODIUM, TAZOBACTAM SODIUM [Concomitant]
     Active Substance: PIPERACILLIN SODIUM\TAZOBACTAM SODIUM
     Indication: ANTIBIOTIC THERAPY
     Dosage: UNK
     Dates: start: 20160905, end: 20160906

REACTIONS (1)
  - Toxic skin eruption [Recovering/Resolving]

NARRATIVE: CASE EVENT DATE: 20160910
